FAERS Safety Report 21487894 (Version 1)
Quarter: 2022Q4

REPORT INFORMATION
  Report Type: Spontaneous
  Country: US (occurrence: US)
  Receive Date: 20221020
  Receipt Date: 20221020
  Transmission Date: 20230113
  Serious: No
  Sender: FDA-Public Use
  Company Number: US-ALLERGAN-2217303US

PATIENT
  Sex: Male

DRUGS (3)
  1. LINZESS [Suspect]
     Active Substance: LINACLOTIDE
     Indication: Constipation
     Dosage: 72 ?G
     Route: 048
  2. ATENOLOL [Concomitant]
     Active Substance: ATENOLOL
     Indication: Heart rate increased
     Dosage: ACTUAL: 5 MG, QD (45-50 YEARS AGO)
     Route: 048
  3. ATENOLOL [Concomitant]
     Active Substance: ATENOLOL
     Dosage: HIGHER DOSE THAN 5MG ONCE A DAY
     Route: 048

REACTIONS (2)
  - Faeces hard [Unknown]
  - Drug ineffective [Unknown]
